FAERS Safety Report 12706835 (Version 4)
Quarter: 2016Q4

REPORT INFORMATION
  Report Type: Spontaneous
  Country: JP (occurrence: JP)
  Receive Date: 20160901
  Receipt Date: 20161207
  Transmission Date: 20170207
  Serious: Yes (Hospitalization)
  Sender: FDA-Public Use
  Company Number: JP-GLAXOSMITHKLINE-JP2016JPN081699

PATIENT
  Age: 99 Year
  Sex: Male
  Weight: 39 kg

DRUGS (9)
  1. URSO [Suspect]
     Active Substance: URSODIOL
     Indication: CHOLESTASIS
     Dosage: 100 MG, TID
     Route: 048
     Dates: start: 20160516, end: 20160607
  2. FERROMIA (JAPAN) [Concomitant]
     Dosage: UNK
  3. AMPICILLIN AND SULBACTAM [Concomitant]
     Active Substance: AMPICILLIN SODIUM\SULBACTAM SODIUM
     Indication: URINARY TRACT INFECTION
     Dosage: UNK
     Dates: start: 20160523
  4. CILASTATIN SODIUM + IMIPENEM HYDRATE [Concomitant]
     Indication: CHOLANGITIS
  5. CILASTATIN SODIUM + IMIPENEM HYDRATE [Concomitant]
     Indication: CHOLESTASIS
     Dosage: UNK
     Dates: start: 20160513
  6. SENNOSIDE [Concomitant]
     Active Substance: SENNOSIDES
     Dosage: UNK
  7. AVOLVE [Suspect]
     Active Substance: DUTASTERIDE
     Indication: BENIGN PROSTATIC HYPERPLASIA
     Dosage: UNK
     Route: 048
     Dates: start: 20160602
  8. URIEF [Suspect]
     Active Substance: SILODOSIN
     Indication: BENIGN PROSTATIC HYPERPLASIA
     Dosage: 4 MG, QD
     Route: 048
     Dates: end: 20160508
  9. URIEF [Suspect]
     Active Substance: SILODOSIN
     Dosage: 4 MG, QD
     Route: 048
     Dates: start: 20160524, end: 20160609

REACTIONS (1)
  - White blood cell count decreased [Recovered/Resolved]

NARRATIVE: CASE EVENT DATE: 20160607
